FAERS Safety Report 9955269 (Version 2)
Quarter: 2014Q1

REPORT INFORMATION
  Report Type: Report from Study
  Country: US (occurrence: US)
  Receive Date: 20140304
  Receipt Date: 20140304
  Transmission Date: 20141002
  Serious: Yes (Other)
  Sender: FDA-Public Use
  Company Number: US-ABBVIE-13P-163-1053334-00

PATIENT
  Age: 55 Year
  Sex: 0
  Weight: 62.2 kg

DRUGS (1)
  1. HUMIRA [Suspect]
     Indication: RHEUMATOID ARTHRITIS
     Route: 058
     Dates: start: 201209

REACTIONS (3)
  - Intervertebral disc operation [Unknown]
  - Neck pain [Unknown]
  - Pain in extremity [Unknown]
